FAERS Safety Report 5344521-6 (Version None)
Quarter: 2007Q2

REPORT INFORMATION
  Report Type: 
  Country: None (occurrence: None)
  Receive Date: 20070604
  Receipt Date: 20070523
  Transmission Date: 20071010
  Serious: Yes (Other)
  Sender: FDA-Public Use
  Company Number: US-PFIZER INC-2007042230

PATIENT
  Sex: Female
  Weight: 95.3 kg

DRUGS (7)
  1. LIPITOR [Suspect]
     Indication: BLOOD CHOLESTEROL INCREASED
  2. PLAVIX [Concomitant]
  3. THYROID TAB [Concomitant]
  4. PERINDOPRIL ERBUMINE [Concomitant]
  5. DIURETICS [Concomitant]
  6. PARIET [Concomitant]
  7. DILTIAZEM [Concomitant]

REACTIONS (1)
  - HEPATOCELLULAR DAMAGE [None]
